FAERS Safety Report 11311079 (Version 1)
Quarter: 2015Q3

REPORT INFORMATION
  Report Type: Report from Study
  Country: FR (occurrence: FR)
  Receive Date: 20150727
  Receipt Date: 20150727
  Transmission Date: 20151125
  Serious: Yes (Death, Hospitalization)
  Sender: FDA-Public Use
  Company Number: FR-BRISTOL-MYERS SQUIBB COMPANY-BMS-2015-047904

PATIENT
  Age: 63 Year
  Sex: Male
  Weight: 77 kg

DRUGS (2)
  1. NIVOLUMAB [Suspect]
     Active Substance: NIVOLUMAB
     Indication: MALIGNANT MELANOMA
     Dosage: 201.75 MG, UNK
     Route: 065
     Dates: start: 20150624
  2. YERVOY [Suspect]
     Active Substance: IPILIMUMAB
     Indication: MALIGNANT MELANOMA
     Dosage: UNK
     Route: 065
     Dates: start: 20150210, end: 20150511

REACTIONS (4)
  - General physical health deterioration [Unknown]
  - Septic shock [Fatal]
  - Diarrhoea [Unknown]
  - Lung disorder [Fatal]

NARRATIVE: CASE EVENT DATE: 20150609
